FAERS Safety Report 18565438 (Version 1)
Quarter: 2020Q4

REPORT INFORMATION
  Report Type: Spontaneous
  Country: US (occurrence: US)
  Receive Date: 20201201
  Receipt Date: 20201201
  Transmission Date: 20210114
  Serious: Yes (Other)
  Sender: FDA-Public Use
  Company Number: None

PATIENT
  Age: 32 Year
  Sex: Female

DRUGS (2)
  1. CAPLACIZUMAB-YHDP [Concomitant]
     Active Substance: CAPLACIZUMAB-YHDP
     Dates: start: 20200622, end: 20200714
  2. CAPLACIZUMAB-YHDP [Suspect]
     Active Substance: CAPLACIZUMAB-YHDP
     Indication: THROMBOTIC THROMBOCYTOPENIC PURPURA
     Route: 058
     Dates: start: 20200622, end: 20200714

REACTIONS (3)
  - Skin reaction [None]
  - Blood disorder [None]
  - Haematoma [None]

NARRATIVE: CASE EVENT DATE: 20200714
